FAERS Safety Report 6319920-6 (Version None)
Quarter: 2009Q3

REPORT INFORMATION
  Report Type: 
  Country: None (occurrence: None)
  Receive Date: 20090822
  Receipt Date: 20081009
  Transmission Date: 20100115
  Serious: No
  Sender: FDA-Public Use
  Company Number: US-ABBOTT-08P-163-0480909-00

PATIENT
  Sex: Female

DRUGS (11)
  1. NIASPAN [Suspect]
     Indication: HYPERCHOLESTEROLAEMIA
     Route: 048
     Dates: start: 20080801
  2. CLOPIDOGREL [Concomitant]
     Indication: CORONARY ARTERIAL STENT INSERTION
  3. ASPIRIN [Concomitant]
     Indication: CORONARY ARTERY DISEASE
  4. DIOVAN HCT [Concomitant]
     Indication: HYPERTENSION
  5. METOPROLOL SUCCINATE [Concomitant]
     Indication: CORONARY ARTERY DISEASE
  6. FISH OIL [Concomitant]
     Indication: CORONARY ARTERY DISEASE
  7. M.V.I. [Concomitant]
     Indication: DRUG USE FOR UNKNOWN INDICATION
  8. IRON [Concomitant]
     Indication: DRUG USE FOR UNKNOWN INDICATION
  9. NALPREXONE [Concomitant]
     Indication: IMMUNODEFICIENCY
  10. NALPREXONE [Concomitant]
     Indication: MOUTH ULCERATION
  11. OMEPRAZOLE [Concomitant]
     Indication: GASTROOESOPHAGEAL REFLUX DISEASE

REACTIONS (2)
  - HOT FLUSH [None]
  - PARAESTHESIA [None]
